FAERS Safety Report 7054573-3 (Version None)
Quarter: 2010Q4

REPORT INFORMATION
  Report Type: 
  Country: None (occurrence: None)
  Receive Date: 20101015
  Receipt Date: 20101001
  Transmission Date: 20110411
  Serious: Yes (Hospitalization)
  Sender: FDA-Public Use
  Company Number: 2010P1001705

PATIENT
  Age: 78 Year
  Sex: Female

DRUGS (2)
  1. SANTYL [Suspect]
     Indication: SKIN ULCER
     Dates: start: 20100101
  2. ^NUMEROUS^ [Concomitant]

REACTIONS (2)
  - DERMATITIS CONTACT [None]
  - DRUG HYPERSENSITIVITY [None]
